FAERS Safety Report 20734264 (Version 2)
Quarter: 2022Q2

REPORT INFORMATION
  Report Type: Spontaneous
  Country: US (occurrence: US)
  Receive Date: 20220421
  Receipt Date: 20220504
  Transmission Date: 20220721
  Serious: Yes (Life-Threatening, Hospitalization)
  Sender: FDA-Public Use
  Company Number: US-TEVA-2022-US-2028315

PATIENT
  Age: 27 Year
  Sex: Male

DRUGS (1)
  1. EPOPROSTENOL [Suspect]
     Active Substance: EPOPROSTENOL
     Indication: Pulmonary arterial hypertension
     Route: 041

REACTIONS (7)
  - Rebound effect [Recovering/Resolving]
  - Cardiogenic shock [Recovering/Resolving]
  - Acute respiratory failure [Unknown]
  - Cyanosis [Unknown]
  - Peripheral coldness [Unknown]
  - Cardiac failure congestive [Unknown]
  - Underdose [Unknown]
